FAERS Safety Report 6370807-2 (Version None)
Quarter: 2009Q3

REPORT INFORMATION
  Report Type: 
  Country: None (occurrence: None)
  Receive Date: 20090923
  Receipt Date: 20070607
  Transmission Date: 20100115
  Serious: Yes (Other)
  Sender: FDA-Public Use
  Company Number: US-ASTRAZENECA-2006UW24818

PATIENT
  Sex: Male
  Weight: 104.3 kg

DRUGS (7)
  1. SEROQUEL [Suspect]
     Route: 048
     Dates: end: 20031017
  2. AMITRIPTYLINE [Concomitant]
  3. AMBIEN [Concomitant]
  4. GEODON [Concomitant]
  5. NAPROSYN [Concomitant]
     Indication: PAIN
     Route: 048
  6. NEURONTIN [Concomitant]
     Indication: ARTHRALGIA
     Dosage: 600-1800 MG
  7. DIPHENHYDRAMINE HCL [Concomitant]

REACTIONS (2)
  - HYPERGLYCAEMIA [None]
  - PANCREATITIS [None]
